FAERS Safety Report 14116518 (Version 4)
Quarter: 2017Q4

REPORT INFORMATION
  Report Type: Spontaneous
  Country: JP (occurrence: JP)
  Receive Date: 20171023
  Receipt Date: 20171220
  Transmission Date: 20180321
  Serious: Yes (Hospitalization)
  Sender: FDA-Public Use
  Company Number: JP-ALLERGAN-1755857US

PATIENT
  Age: 88 Year
  Sex: Female
  Weight: 43 kg

DRUGS (1)
  1. RISEDRONATE SODIUM - BP [Suspect]
     Active Substance: RISEDRONATE SODIUM
     Indication: OSTEOPOROSIS
     Dosage: 75 MG, Q MONTH
     Route: 048

REACTIONS (3)
  - Femur fracture [Unknown]
  - Bone formation decreased [Unknown]
  - Fall [Unknown]
